FAERS Safety Report 13388089 (Version 1)
Quarter: 2017Q1

REPORT INFORMATION
  Report Type: Spontaneous
  Country: DE (occurrence: DE)
  Receive Date: 20170330
  Receipt Date: 20170330
  Transmission Date: 20170429
  Serious: Yes (Hospitalization)
  Sender: FDA-Public Use
  Company Number: DE-IMPAX LABORATORIES, INC-2017-IPXL-00768

PATIENT
  Age: 32 Year
  Sex: Female

DRUGS (3)
  1. DIVALPROEX SODIUM ER [Suspect]
     Active Substance: DIVALPROEX SODIUM
     Indication: INTENTIONAL OVERDOSE
     Dosage: 56 G; DELAYED RELEASE FORMULATION
     Route: 065
  2. MIRTAZAPINE ODT [Suspect]
     Active Substance: MIRTAZAPINE
     Indication: INTENTIONAL OVERDOSE
     Dosage: MAXIMUM DOSE OF 540 MG
     Route: 065
  3. VENLAFAXINE [Suspect]
     Active Substance: VENLAFAXINE HYDROCHLORIDE
     Indication: INTENTIONAL OVERDOSE
     Dosage: MAXIMUM DOSE OF 9.75 G; DELAYED RELEASE FORMULATION
     Route: 065

REACTIONS (10)
  - Platelet count decreased [Recovered/Resolved]
  - Vomiting [Recovered/Resolved]
  - Cardiopulmonary failure [Recovered/Resolved]
  - Pneumonia aspiration [Recovered/Resolved]
  - Hypotension [Recovered/Resolved]
  - Somnolence [Recovered/Resolved]
  - Intentional overdose [Recovered/Resolved]
  - International normalised ratio increased [Recovered/Resolved]
  - Hyperammonaemia [Recovered/Resolved]
  - Depressed level of consciousness [Recovered/Resolved]
